FAERS Safety Report 9409845 (Version 2)
Quarter: 2013Q3

REPORT INFORMATION
  Report Type: Spontaneous
  Country: FR (occurrence: FR)
  Receive Date: 20130719
  Receipt Date: 20130731
  Transmission Date: 20140515
  Serious: Yes (Hospitalization)
  Sender: FDA-Public Use
  Company Number: FR-PFIZER INC-2013208115

PATIENT
  Age: 86 Year
  Sex: Male

DRUGS (6)
  1. AMLOR [Suspect]
     Dosage: 1 DF, 1X/DAY
     Route: 048
     Dates: start: 20130531, end: 20130610
  2. AMOXICILLIN [Suspect]
     Indication: ARTHRITIS BACTERIAL
     Dosage: 3 G, 3X/DAY
     Route: 048
     Dates: start: 20130422, end: 20130610
  3. CEFTRIAXONE [Suspect]
     Indication: ARTHRITIS BACTERIAL
     Dosage: 1 G, 1X/DAY
     Route: 058
     Dates: start: 20130605, end: 20130610
  4. PREVISCAN [Concomitant]
  5. FUROSEMIDE [Concomitant]
  6. DOLIPRANE [Concomitant]

REACTIONS (6)
  - Rash morbilliform [Recovering/Resolving]
  - Rash scarlatiniform [Recovering/Resolving]
  - Pruritus [Recovering/Resolving]
  - Toxic skin eruption [Recovering/Resolving]
  - Renal failure [Recovering/Resolving]
  - Cardiac failure [Recovering/Resolving]
